FAERS Safety Report 12679205 (Version 2)
Quarter: 2017Q1

REPORT INFORMATION
  Report Type: Spontaneous
  Country: US (occurrence: US)
  Receive Date: 20160824
  Receipt Date: 20170205
  Transmission Date: 20170428
  Serious: No
  Sender: FDA-Public Use
  Company Number: US-BIOGEN-2016BI00280579

PATIENT
  Age: 43 Year
  Sex: Female

DRUGS (2)
  1. TYSABRI [Suspect]
     Active Substance: NATALIZUMAB
     Indication: MULTIPLE SCLEROSIS
     Route: 065
     Dates: start: 20160711
  2. TYSABRI [Suspect]
     Active Substance: NATALIZUMAB
     Route: 065
     Dates: end: 20160909

REACTIONS (5)
  - Feeling hot [Unknown]
  - Band sensation [Unknown]
  - Peripheral coldness [Unknown]
  - Arthralgia [Unknown]
  - Balance disorder [Unknown]

NARRATIVE: CASE EVENT DATE: 201607
